FAERS Safety Report 8256854-4 (Version None)
Quarter: 2012Q2

REPORT INFORMATION
  Report Type: 
  Country: None (occurrence: None)
  Receive Date: 20120403
  Receipt Date: 20120329
  Transmission Date: 20120825
  Serious: Yes (Other)
  Sender: FDA-Public Use
  Company Number: US-PFIZER INC-2012081039

PATIENT
  Sex: Female
  Weight: 77 kg

DRUGS (14)
  1. HUMALOG [Concomitant]
     Dosage: UNK
  2. NEURONTIN [Suspect]
     Indication: ADVERSE EVENT
     Dosage: UNK
     Dates: start: 20120301, end: 20120301
  3. KLONOPIN [Suspect]
     Indication: BREAST PAIN
  4. KLONOPIN [Suspect]
     Indication: ADVERSE REACTION
  5. RAMIPRIL [Suspect]
     Dosage: UNK
  6. NEURONTIN [Suspect]
     Indication: PERIPHERAL SENSORY NEUROPATHY
  7. KLONOPIN [Suspect]
     Indication: FEELING ABNORMAL
  8. NEURONTIN [Suspect]
     Indication: SENSORY LEVEL ABNORMAL
  9. KLONOPIN [Suspect]
     Indication: ABDOMINAL DISTENSION
  10. KLONOPIN [Suspect]
     Indication: SKIN SENSITISATION
  11. FUROSEMIDE [Concomitant]
     Dosage: UNK
  12. LIPITOR [Suspect]
     Indication: BLOOD CHOLESTEROL INCREASED
     Dosage: 20 MG, 1X/DAY
     Route: 048
     Dates: end: 20120301
  13. KLONOPIN [Suspect]
     Indication: DISCOMFORT
     Dosage: UNK
     Dates: start: 20120301, end: 20120301
  14. PLAVIX [Concomitant]
     Dosage: UNK

REACTIONS (10)
  - DISCOMFORT [None]
  - OEDEMA [None]
  - SENSORY LEVEL ABNORMAL [None]
  - BREAST PAIN [None]
  - SOMNOLENCE [None]
  - NEUROPATHY PERIPHERAL [None]
  - RENAL DISORDER [None]
  - ABDOMINAL DISTENSION [None]
  - SKIN SENSITISATION [None]
  - NERVE INJURY [None]
